FAERS Safety Report 15964389 (Version 1)
Quarter: 2019Q1

REPORT INFORMATION
  Report Type: Spontaneous
  Country: US (occurrence: US)
  Receive Date: 20190215
  Receipt Date: 20190215
  Transmission Date: 20190417
  Serious: No
  Sender: FDA-Public Use
  Company Number: US-ASTRAZENECA-2019SE13385

PATIENT
  Age: 48 Year
  Sex: Female

DRUGS (1)
  1. FASENRA [Suspect]
     Active Substance: BENRALIZUMAB
     Indication: ASTHMA
     Dosage: 30 MG FIRST 3 DOSES AT 4 WEEKS APART AND THEN 4 TH DOSE 8 WEEKS AFTER THAT
     Route: 058

REACTIONS (1)
  - FEV1/FVC ratio decreased [Unknown]
